FAERS Safety Report 8442733 (Version 2)
Quarter: 2012Q4

REPORT INFORMATION
  Report Type: 
  Country: US (occurrence: None)
  Receive Date: 20120104
  Receipt Date: 20120508
  Transmission Date: 20130627
  Serious: Yes (Other)
  Sender: FDA-Public Use
  Company Number: 2011HGS-002822

PATIENT
  Age: 50 Year
  Sex: Female
  Weight: 117.94 kg

DRUGS (23)
  1. BENLYSTA [Suspect]
     Indication: SYSTEMIC LUPUS ERYTHEMATOSUS
     Dosage: 1 IN 28 D, INTRAVENOUS DRIP
     Route: 041
     Dates: start: 20111109, end: 20111109
  2. BENLYSTA [Suspect]
     Indication: SYSTEMIC LUPUS ERYTHEMATOSUS
     Dosage: 1200 mg, 1 in 28 d, intravenous
     Route: 042
     Dates: start: 20111116, end: 20111116
  3. METHOTREXATE [Concomitant]
  4. PLAQUENIL [Concomitant]
  5. OXYCODONE HYDROCHLORIDE [Concomitant]
  6. SOMA [Concomitant]
  7. LYRICA [Concomitant]
  8. ABILIFY [Concomitant]
  9. CLONAZEPAM [Concomitant]
  10. RESTORIL [Concomitant]
  11. TRAZODONE HYDROCHLORIDE [Concomitant]
  12. ZANTAC [Concomitant]
  13. MIRALAX (MACROGOL) (MACROGOL) [Concomitant]
  14. UNIVASC (MOEXIPRIL HYDROCHLORIDE) (MOEXIPRIL HYDROCHLORIDE) [Concomitant]
  15. LEXOPRO (ESCITALOPRAM OXALATE) (ESCITALOPRM OXALATE) [Concomitant]
  16. PEPTO BISMOL (BISMUTH SUBSALICYLATE) (BISMUTH SUBSALICYLATE) [Concomitant]
  17. PROMETHAZINE HCL (PROMETHAZINE HYDROCHLORIDE) (PROMETHAZINE HYDROCHLORIDE) [Concomitant]
  18. HYDRCHLOROTHIAZIDE (PROMETHAZINE HYDROCHLORIDE) (PROMETHAZINEHYDROCHLORIDE) [Concomitant]
  19. FOLIC CID (FOLIC ACID) (FOLIC ACID) [Concomitant]
  20. FLONASE (FLUTICASONE PROPIONATE) (FLUTICASONE PROPIONATE) [Concomitant]
  21. BENADRYL (DIPHENHYDRAMINE HYDROCHLORIDE) (DIPHENHYDRAMINE HYDROCHLORIDE) [Concomitant]
  22. COLACE (DOCUSATE SODIUM) (DOCUSATE SODIUM) [Concomitant]
  23. OMEPRAZOLE (OMEPRAZOLE) (OMEPRAZOLE) [Concomitant]

REACTIONS (5)
  - Chest pain [None]
  - Oropharyngeal pain [None]
  - Wheezing [None]
  - Urticaria [None]
  - Pruritus [None]
